FAERS Safety Report 10490290 (Version 2)
Quarter: 2014Q4

REPORT INFORMATION
  Report Type: Report from Study
  Country: US (occurrence: US)
  Receive Date: 20141002
  Receipt Date: 20141002
  Transmission Date: 20150528
  Serious: Yes (Life-Threatening, Hospitalization, Other)
  Sender: FDA-Public Use
  Company Number: US-TAKEDA-2014MPI002161

PATIENT
  Age: 3 Year
  Sex: Male
  Weight: 17.3 kg

DRUGS (8)
  1. VELCADE [Suspect]
     Active Substance: BORTEZOMIB
     Indication: ACUTE MYELOID LEUKAEMIA
     Dosage: 1.3 MG/M2/DOSE OVER 3-5 SECONDS ON DAYS 1, 4, AND 8
     Route: 040
     Dates: start: 20140807, end: 20140807
  2. CYTARABINE. [Suspect]
     Active Substance: CYTARABINE
     Dosage: 100 MG/M2/DOSE OR 3.3 MG/KG/DOSE (IF BSA { 0.6 M2) OVER 15-30 MINUTES ON DAYS 1-10
     Route: 042
     Dates: start: 20140807, end: 20140821
  3. ETOPOSIDE. [Suspect]
     Active Substance: ETOPOSIDE
     Indication: ACUTE MYELOID LEUKAEMIA
     Dosage: 100 MG/M2/DOSE OR 3.3 MG/KG/DOSE (IF BSA { 0.6 M2) IV OVER 60-120 MINUTES ON DAYS 1-5
     Route: 042
     Dates: start: 20140807, end: 20140811
  4. SORAFENIB TOSYLATE [Suspect]
     Active Substance: SORAFENIB TOSYLATE
     Dosage: 100 MG/M2, UNK
     Dates: start: 20140829, end: 20140903
  5. DAUNORUBICIN HYDROCHLORIDE. [Suspect]
     Active Substance: DAUNORUBICIN HYDROCHLORIDE
     Indication: ACUTE MYELOID LEUKAEMIA
     Dosage: 50 MG/M2/DOSE OR 1.7 MG/KG/DOSE (IF BSA { 0.6 M2) IV OVER 1-15 MINUTES ON DAYS 1, 3 AND 5
     Route: 042
     Dates: start: 20140807, end: 20140811
  6. CYTARABINE. [Suspect]
     Active Substance: CYTARABINE
     Indication: ACUTE MYELOID LEUKAEMIA
     Dosage: 20-70 MG (AGE BASED DOSING) ON DAY 1
     Route: 037
     Dates: start: 20140807
  7. SORAFENIB TOSYLATE [Suspect]
     Active Substance: SORAFENIB TOSYLATE
     Indication: ACUTE MYELOID LEUKAEMIA
     Dosage: 100 MG/M2, UNK
     Route: 048
     Dates: start: 20140817, end: 20140821
  8. SORAFENIB TOSYLATE [Suspect]
     Active Substance: SORAFENIB TOSYLATE
     Dosage: 100 MG/M2, UNK
     Route: 048
     Dates: start: 20140822, end: 20140824

REACTIONS (13)
  - Tumour lysis syndrome [Recovering/Resolving]
  - Ileus [Not Recovered/Not Resolved]
  - Hypoalbuminaemia [Recovering/Resolving]
  - Cardiac disorder [Not Recovered/Not Resolved]
  - Acidosis [Recovering/Resolving]
  - Weight decreased [Not Recovered/Not Resolved]
  - Ejection fraction decreased [Not Recovered/Not Resolved]
  - Alkalosis [Recovering/Resolving]
  - Abdominal distension [Not Recovered/Not Resolved]
  - Hypertension [Not Recovered/Not Resolved]
  - Pleural effusion [Not Recovered/Not Resolved]
  - Hypotension [Recovering/Resolving]
  - Blood bilirubin increased [Not Recovered/Not Resolved]

NARRATIVE: CASE EVENT DATE: 20140808
